FAERS Safety Report 5707141-7 (Version None)
Quarter: 2008Q2

REPORT INFORMATION
  Report Type: 
  Country: None (occurrence: None)
  Receive Date: 20080416
  Receipt Date: 20080408
  Transmission Date: 20081010
  Serious: Yes (Other)
  Sender: FDA-Public Use
  Company Number: FR-ROCHE-557631

PATIENT
  Sex: Male

DRUGS (2)
  1. COPEGUS [Suspect]
     Route: 065
  2. COPEGUS [Suspect]
     Route: 065

REACTIONS (5)
  - ANAEMIA [None]
  - DRY SKIN [None]
  - GOUT [None]
  - HYPERURICAEMIA [None]
  - PRURITUS [None]
